FAERS Safety Report 7913486-2 (Version None)
Quarter: 2011Q4

REPORT INFORMATION
  Report Type: 
  Country: None (occurrence: None)
  Receive Date: 20111110
  Receipt Date: 20111026
  Transmission Date: 20120403
  Serious: Yes (Other)
  Sender: FDA-Public Use
  Company Number: 2011AP002506

PATIENT
  Age: 50 Year
  Sex: Female

DRUGS (10)
  1. MICRONOR [Concomitant]
  2. DIAZEPAM [Concomitant]
  3. TEMAZEPAM [Concomitant]
  4. OMEPRAZOLE [Suspect]
     Dosage: 20 MG;QD
  5. VESICARE [Suspect]
     Indication: HYPERTONIC BLADDER
     Dosage: PO
     Route: 048
     Dates: start: 20101216, end: 20110310
  6. DIAZEPAM [Concomitant]
  7. VENTOLIN [Concomitant]
  8. ACETAMINOPHEN W/ CODEINE [Concomitant]
  9. CO-PROXAMOL (APOREX) [Concomitant]
  10. RHINOLAST (AZELASTINE HYDROCHLORIDE) [Concomitant]

REACTIONS (7)
  - ALOPECIA [None]
  - SKIN BURNING SENSATION [None]
  - PALPITATIONS [None]
  - SKIN DISORDER [None]
  - VISION BLURRED [None]
  - DRY EYE [None]
  - OFF LABEL USE [None]
